FAERS Safety Report 5116265-7 (Version None)
Quarter: 2006Q3

REPORT INFORMATION
  Report Type: 
  Country: None (occurrence: None)
  Receive Date: 20060927
  Receipt Date: 20060921
  Transmission Date: 20061208
  Serious: Yes (Other)
  Sender: FDA-Public Use
  Company Number: CH-GLAXOSMITHKLINE-B0439734A

PATIENT
  Age: 80 Year
  Sex: Male

DRUGS (4)
  1. AUGMENTIN '125' [Suspect]
     Route: 048
     Dates: start: 20060101, end: 20060101
  2. AMOXICILLIN TRIHYDRATE [Suspect]
     Route: 065
  3. RENITEN [Concomitant]
     Indication: ESSENTIAL HYPERTENSION
     Route: 048
  4. ZYLORIC [Concomitant]
     Indication: GOUT
     Dosage: 100MG PER DAY
     Route: 048

REACTIONS (6)
  - DIARRHOEA [None]
  - DISCOMFORT [None]
  - HYPERSENSITIVITY [None]
  - LOSS OF CONSCIOUSNESS [None]
  - SYNCOPE VASOVAGAL [None]
  - VOMITING [None]
